FAERS Safety Report 4429488-7 (Version None)
Quarter: 2004Q3

REPORT INFORMATION
  Report Type: 
  Country: None (occurrence: None)
  Receive Date: 20040816
  Receipt Date: 20040730
  Transmission Date: 20050211
  Serious: Yes (Hospitalization)
  Sender: FDA-Public Use
  Company Number: 173529

PATIENT
  Age: 73 Year
  Sex: Female
  Weight: 45.3597 kg

DRUGS (6)
  1. AVONEX [Suspect]
     Indication: MULTIPLE SCLEROSIS
     Dosage: 30 MCG QW IM
     Route: 030
     Dates: start: 19990416, end: 20030701
  2. VITAMIN B-12 [Concomitant]
  3. ACTONEL [Concomitant]
  4. CIPROFLOXACIN [Concomitant]
  5. PREMARIN [Concomitant]
  6. METHYLPREDNISOLONE [Concomitant]

REACTIONS (6)
  - DEMENTIA [None]
  - EYE INFECTION [None]
  - PNEUMONIA [None]
  - PROGRESSIVE MULTIPLE SCLEROSIS [None]
  - TEMPORAL ARTERITIS [None]
  - URINARY TRACT INFECTION [None]
